FAERS Safety Report 24380694 (Version 3)
Quarter: 2024Q4

REPORT INFORMATION
  Report Type: Spontaneous
  Country: JP (occurrence: JP)
  Receive Date: 20240930
  Receipt Date: 20241105
  Transmission Date: 20250115
  Serious: Yes (Other)
  Sender: PFIZER
  Company Number: JP-PFIZER INC-PV202400127096

PATIENT
  Age: 60 Year
  Sex: Male

DRUGS (4)
  1. ELREXFIO [Suspect]
     Active Substance: ELRANATAMAB-BCMM
     Indication: Plasma cell myeloma
     Dosage: 12 MG, SINGLE
     Route: 058
     Dates: start: 20240911
  2. ELREXFIO [Suspect]
     Active Substance: ELRANATAMAB-BCMM
     Dosage: 32 MG, SINGLE
     Route: 058
     Dates: start: 20240914
  3. ELREXFIO [Suspect]
     Active Substance: ELRANATAMAB-BCMM
     Dosage: 76 MG, SINGLE
     Route: 058
     Dates: start: 20240918
  4. ELREXFIO [Suspect]
     Active Substance: ELRANATAMAB-BCMM
     Dosage: 76 MG, SINGLE
     Route: 058
     Dates: start: 20240925

REACTIONS (3)
  - Cytokine release syndrome [Recovered/Resolved]
  - Tumour lysis syndrome [Not Recovered/Not Resolved]
  - Neoplasm progression [Unknown]

NARRATIVE: CASE EVENT DATE: 20240920
